FAERS Safety Report 17289082 (Version 6)
Quarter: 2020Q2

REPORT INFORMATION
  Report Type: Spontaneous
  Country: US (occurrence: US)
  Receive Date: 20200120
  Receipt Date: 20200526
  Transmission Date: 20200713
  Serious: Yes (Other)
  Sender: FDA-Public Use
  Company Number: US-PFIZER INC-2020023958

PATIENT
  Age: 69 Year
  Sex: Male
  Weight: 73.94 kg

DRUGS (7)
  1. ONPATTRO [Concomitant]
     Active Substance: PATISIRAN SODIUM
     Dosage: UNK
  2. VYNDAQEL [Suspect]
     Active Substance: TAFAMIDIS MEGLUMINE
     Indication: CARDIAC AMYLOIDOSIS
     Dosage: 80 MG, DAILY
     Route: 048
     Dates: start: 2018
  3. VYNDAQEL [Suspect]
     Active Substance: TAFAMIDIS MEGLUMINE
     Indication: AMYLOIDOSIS
     Dosage: 80 MG, 1X/DAY
     Route: 048
  4. BYSTOLIC [Concomitant]
     Active Substance: NEBIVOLOL HYDROCHLORIDE
     Indication: HYPERTENSION
     Dosage: UNK (TWICE DAILY IF I AM ON ANOTHER MEDICATION. ONCE DAILY IF I AM NOT ON THAT MEDICATION)
  5. VYNDAQEL [Suspect]
     Active Substance: TAFAMIDIS MEGLUMINE
     Indication: CARDIAC DISORDER
  6. VYNDAQEL [Suspect]
     Active Substance: TAFAMIDIS MEGLUMINE
     Indication: NERVOUS SYSTEM DISORDER
  7. SUTENT [Concomitant]
     Active Substance: SUNITINIB MALATE
     Dosage: UNK

REACTIONS (4)
  - Cardiac failure chronic [Unknown]
  - Chest discomfort [Unknown]
  - Cataract [Unknown]
  - Blood pressure increased [Unknown]

NARRATIVE: CASE EVENT DATE: 20200115
